FAERS Safety Report 10512502 (Version 1)
Quarter: 2014Q4

REPORT INFORMATION
  Report Type: Spontaneous
  Country: NZ (occurrence: NZ)
  Receive Date: 20141011
  Receipt Date: 20141011
  Transmission Date: 20150528
  Serious: Yes (Other)
  Sender: FDA-Public Use
  Company Number: PHHY2014NZ131557

PATIENT
  Age: 65 Year
  Sex: Female

DRUGS (2)
  1. DICLOFENAC [Suspect]
     Active Substance: DICLOFENAC
     Indication: PRODUCT USED FOR UNKNOWN INDICATION
     Route: 065
  2. SANDOSTATIN LAR DEPOT [Suspect]
     Active Substance: OCTREOTIDE ACETATE
     Indication: NEUROENDOCRINE TUMOUR
     Route: 065

REACTIONS (9)
  - Malignant neoplasm progression [Unknown]
  - Flushing [Unknown]
  - Abdominal distension [Unknown]
  - Blood chromogranin A increased [Unknown]
  - Abdominal pain [Unknown]
  - Large intestine polyp [Unknown]
  - Metastases to liver [Unknown]
  - Abdominal discomfort [Unknown]
  - Dermoid cyst [Unknown]

NARRATIVE: CASE EVENT DATE: 2011
